FAERS Safety Report 17626560 (Version 2)
Quarter: 2020Q2

REPORT INFORMATION
  Report Type: Spontaneous
  Country: IT (occurrence: IT)
  Receive Date: 20200405
  Receipt Date: 20200624
  Transmission Date: 20200713
  Serious: Yes (Other)
  Sender: FDA-Public Use
  Company Number: NVSC2020IT090808

PATIENT
  Age: 86 Year
  Sex: Male

DRUGS (1)
  1. AMIODARONE [Suspect]
     Active Substance: AMIODARONE
     Indication: PRODUCT USED FOR UNKNOWN INDICATION
     Dosage: 1 DF, QD (IN THE MORNING)
     Route: 065
     Dates: start: 201901, end: 201910

REACTIONS (6)
  - Loss of consciousness [Unknown]
  - Syncope [Unknown]
  - Confusional state [Unknown]
  - Balance disorder [Unknown]
  - Fall [Unknown]
  - Memory impairment [Unknown]
